FAERS Safety Report 23938657 (Version 1)
Quarter: 2024Q2

REPORT INFORMATION
  Report Type: Spontaneous
  Country: US (occurrence: None)
  Receive Date: 20240604
  Receipt Date: 20240604
  Transmission Date: 20240716
  Serious: No
  Sender: FDA-Public Use
  Company Number: None

PATIENT
  Age: 53 Year
  Sex: Female
  Weight: 60.75 kg

DRUGS (7)
  1. ESTRADIOL [Suspect]
     Active Substance: ESTRADIOL
     Indication: Artificial menopause
     Dosage: OTHER QUANTITY : 1 FINGERTIP AMOUNT?OTHER FREQUENCY : QHS TWICE A WEEK?
     Route: 067
     Dates: start: 20240312, end: 20240410
  2. ONE A DAY WOMEN^S OVER 50 [Concomitant]
  3. HERBALS\TURMERIC [Concomitant]
     Active Substance: HERBALS\TURMERIC
  4. MINERALS\VITAMINS [Concomitant]
     Active Substance: MINERALS\VITAMINS
  5. CALCIUM [Concomitant]
     Active Substance: CALCIUM
  6. VITAMIN D [Concomitant]
     Active Substance: VITAMIN D NOS
  7. FISH OIL [Concomitant]
     Active Substance: FISH OIL

REACTIONS (4)
  - Dysuria [None]
  - Urethritis [None]
  - Vulvovaginitis [None]
  - Vulvovaginal candidiasis [None]

NARRATIVE: CASE EVENT DATE: 20240410
